FAERS Safety Report 21980671 (Version 1)
Quarter: 2023Q1

REPORT INFORMATION
  Report Type: Spontaneous
  Country: US (occurrence: US)
  Receive Date: 20230211
  Receipt Date: 20230211
  Transmission Date: 20230417
  Serious: Yes (Other)
  Sender: FDA-Public Use
  Company Number: US-JNJFOC-20230200161

PATIENT

DRUGS (1)
  1. TECLISTAMAB [Suspect]
     Active Substance: TECLISTAMAB
     Indication: Neoplasm
     Route: 065

REACTIONS (3)
  - Lipase increased [Unknown]
  - C-reactive protein increased [Unknown]
  - Inflammatory marker increased [Unknown]
